FAERS Safety Report 9038093 (Version 1)
Quarter: 2013Q1

REPORT INFORMATION
  Report Type: Other
  Country: US (occurrence: US)
  Receive Date: 20130129
  Receipt Date: 20130129
  Transmission Date: 20140127
  Serious: Yes (Death)
  Sender: FDA-Public Use
  Company Number: US-FRI-1000042145

PATIENT
  Age: 48 Year
  Sex: Female

DRUGS (10)
  1. ESCITALOPRAM [Suspect]
  2. PROPRANOLOL [Suspect]
  3. OXYCODONE [Suspect]
  4. TRAZODONE [Suspect]
  5. CLONAZEPAM [Suspect]
  6. HYDROXYZINE [Suspect]
  7. RISPERIDONE [Suspect]
  8. TEMAZEPAM [Suspect]
  9. BENZTROPINE [Suspect]
  10. ONDANSETRON [Suspect]

REACTIONS (2)
  - Completed suicide [Fatal]
  - Cardio-respiratory arrest [Fatal]
